FAERS Safety Report 14326675 (Version 13)
Quarter: 2022Q4

REPORT INFORMATION
  Report Type: Report from Study
  Country: JP (occurrence: JP)
  Receive Date: 20171227
  Receipt Date: 20221004
  Transmission Date: 20230113
  Serious: Yes (Hospitalization)
  Sender: FDA-Public Use
  Company Number: JP-ABBVIE-17K-087-2198372-00

PATIENT
  Age: 74 Year
  Sex: Male
  Weight: 59 kg

DRUGS (8)
  1. CARBIDOPA\LEVODOPA [Suspect]
     Active Substance: CARBIDOPA\LEVODOPA
     Indication: Parkinson^s disease
     Dosage: MD 11 ML?CD 2.5 ML/HRS BY 14 HRS
     Route: 050
     Dates: start: 20171115, end: 20171115
  2. CARBIDOPA\LEVODOPA [Suspect]
     Active Substance: CARBIDOPA\LEVODOPA
     Dosage: MD 8 ML?CD 3 ML/HRS BY 14 HRS
     Route: 050
     Dates: start: 20171116, end: 20171116
  3. CARBIDOPA\LEVODOPA [Suspect]
     Active Substance: CARBIDOPA\LEVODOPA
     Dosage: MD 8 ML?CD 3.5 ML/HRS ? 14 HRS
     Route: 050
     Dates: start: 20171117, end: 20171118
  4. CARBIDOPA\LEVODOPA [Suspect]
     Active Substance: CARBIDOPA\LEVODOPA
     Dosage: MD 8 ML?CD 4 ML/HRS ? 14 HRS
     Route: 050
     Dates: start: 20171119, end: 20171121
  5. CARBIDOPA\LEVODOPA [Suspect]
     Active Substance: CARBIDOPA\LEVODOPA
     Dosage: MD 6 ML?CD 5 ML/HRS BY 5 HRS
     Route: 050
     Dates: start: 20171122, end: 20171122
  6. CARBIDOPA\LEVODOPA [Suspect]
     Active Substance: CARBIDOPA\LEVODOPA
     Dosage: MD 11 ML?CD 4 ML/HRS BY 14 HRS
     Route: 050
     Dates: start: 20171123, end: 20171215
  7. CARBIDOPA\LEVODOPA [Suspect]
     Active Substance: CARBIDOPA\LEVODOPA
     Route: 050
     Dates: start: 20171216
  8. PRAMIPEXOLE DIHYDROCHLORIDE [Concomitant]
     Active Substance: PRAMIPEXOLE DIHYDROCHLORIDE
     Indication: Product used for unknown indication
     Route: 048

REACTIONS (11)
  - Urinary tract infection [Not Recovered/Not Resolved]
  - Stoma site extravasation [Unknown]
  - Benign prostatic hyperplasia [Not Recovered/Not Resolved]
  - Device failure [Unknown]
  - Pollakiuria [Not Recovered/Not Resolved]
  - Dysuria [Not Recovered/Not Resolved]
  - Urinary retention [Not Recovered/Not Resolved]
  - Off label use [Unknown]
  - Posture abnormal [Unknown]
  - Stoma site hypergranulation [Unknown]
  - Stoma site pain [Unknown]

NARRATIVE: CASE EVENT DATE: 20171204
